FAERS Safety Report 7521880-7 (Version None)
Quarter: 2011Q2

REPORT INFORMATION
  Report Type: 
  Country: None (occurrence: None)
  Receive Date: 20110524
  Receipt Date: 20110512
  Transmission Date: 20111010
  Serious: Yes (Hospitalization)
  Sender: FDA-Public Use
  Company Number: WAES 1105USA02651

PATIENT
  Sex: Male

DRUGS (9)
  1. METHOTREXATE SODIUM [Suspect]
     Dosage: 7.5 MG/WKY PO
     Route: 048
     Dates: start: 20010101
  2. CARVEDILOL [Concomitant]
  3. FILICINE [Concomitant]
  4. HYDROCORTONE [Suspect]
     Dosage: 30 MG/DAILY PO
     Route: 048
     Dates: start: 19970101, end: 20101015
  5. ALLOPURINOL [Concomitant]
  6. NORVASC [Concomitant]
  7. LEPUR [Concomitant]
  8. ONE-ALPHA [Concomitant]
  9. CALCIORAL [Concomitant]

REACTIONS (1)
  - GOUTY ARTHRITIS [None]
